FAERS Safety Report 13727171 (Version 1)
Quarter: 2017Q3

REPORT INFORMATION
  Report Type: Spontaneous
  Country: CH (occurrence: CH)
  Receive Date: 20170706
  Receipt Date: 20170706
  Transmission Date: 20171127
  Serious: Yes (Hospitalization)
  Sender: FDA-Public Use
  Company Number: CH-ELI_LILLY_AND_COMPANY-CH201706012920

PATIENT
  Age: 35 Year
  Sex: Female

DRUGS (7)
  1. FLUCTINE [Interacting]
     Active Substance: FLUOXETINE HYDROCHLORIDE
     Indication: DEPRESSION
  2. GENVOYA [Suspect]
     Active Substance: COBICISTAT\ELVITEGRAVIR\EMTRICITABINE\TENOFOVIR ALAFENAMIDE FUMARATE
     Indication: HIV INFECTION
     Dosage: 1 DF, DAILY
     Route: 048
     Dates: start: 201702, end: 20170621
  3. FLUCTINE [Suspect]
     Active Substance: FLUOXETINE HYDROCHLORIDE
     Indication: BORDERLINE PERSONALITY DISORDER
     Dosage: 40 MG, DAILY
     Route: 048
     Dates: end: 20170621
  4. METHADONE [Interacting]
     Active Substance: METHADONE HYDROCHLORIDE
     Indication: DRUG USE DISORDER
     Dosage: 35 MG, DAILY
     Route: 048
     Dates: start: 201704
  5. ZOLDORM [Suspect]
     Active Substance: ZOLPIDEM TARTRATE
     Indication: SEDATION
     Dosage: 80 MG, UNK
     Route: 048
     Dates: start: 20170620, end: 20170620
  6. TRITTICO [Interacting]
     Active Substance: TRAZODONE HYDROCHLORIDE
     Indication: BORDERLINE PERSONALITY DISORDER
     Dosage: 100 MG, DAILY
     Route: 048
     Dates: end: 20170621
  7. TRITTICO [Interacting]
     Active Substance: TRAZODONE HYDROCHLORIDE
     Indication: DEPRESSION

REACTIONS (3)
  - Exposure during pregnancy [Unknown]
  - Overdose [Recovered/Resolved]
  - Electrocardiogram QT prolonged [Unknown]

NARRATIVE: CASE EVENT DATE: 201705
